FAERS Safety Report 13713344 (Version 1)
Quarter: 2017Q3

REPORT INFORMATION
  Report Type: Spontaneous
  Country: US (occurrence: US)
  Receive Date: 20170704
  Receipt Date: 20170704
  Transmission Date: 20171127
  Serious: No
  Sender: FDA-Public Use
  Company Number: US-LUPIN PHARMACEUTICALS INC.-2016-04567

PATIENT
  Age: 47 Year
  Sex: Male
  Weight: 71.8 kg

DRUGS (3)
  1. LOPINAVIR 200 MG/RITONAVIR 50 MG [Suspect]
     Active Substance: LOPINAVIR\RITONAVIR
     Indication: HIV INFECTION
     Dosage: 2 DF,BID,
     Route: 065
  2. SULFAMETHOXAZOLE 800 MG AND TRIMETHOPRIM 160 MG [Concomitant]
     Indication: PRODUCT USED FOR UNKNOWN INDICATION
     Dosage: 1 DF,QD,
     Route: 065
  3. LAMIVUDINE AND ZIDOVUDINE TABLETS USP, 150 MG/300 MG [Suspect]
     Active Substance: LAMIVUDINE\ZIDOVUDINE
     Indication: HIV INFECTION
     Dosage: 1 DF,BID,
     Route: 065

REACTIONS (1)
  - Diarrhoea [Recovered/Resolved]
